FAERS Safety Report 10629289 (Version 1)
Quarter: 2014Q4

REPORT INFORMATION
  Report Type: Spontaneous
  Country: US (occurrence: US)
  Receive Date: 20141205
  Receipt Date: 20141205
  Transmission Date: 20150529
  Serious: No
  Sender: FDA-Public Use
  Company Number: US-BRISTOL-MYERS SQUIBB COMPANY-21337795

PATIENT
  Age: 24 Year
  Sex: Male

DRUGS (1)
  1. ABILIFY [Suspect]
     Active Substance: ARIPIPRAZOLE

REACTIONS (6)
  - Chest pain [Unknown]
  - Throat tightness [Unknown]
  - Chromaturia [Unknown]
  - Dysphagia [Unknown]
  - Vision blurred [Unknown]
  - Rash macular [Unknown]
